FAERS Safety Report 7759401-6 (Version None)
Quarter: 2011Q3

REPORT INFORMATION
  Report Type: 
  Country: None (occurrence: None)
  Receive Date: 20110919
  Receipt Date: 20110914
  Transmission Date: 20111222
  Serious: Yes (Hospitalization)
  Sender: FDA-Public Use
  Company Number: FR-ROCHE-801658

PATIENT
  Sex: Female

DRUGS (16)
  1. LEXOMIL [Suspect]
     Route: 048
     Dates: start: 20100817, end: 20110427
  2. PAROXETINE HCL [Suspect]
     Route: 048
     Dates: start: 20110701
  3. PANTOPRAZOLE SODIUM [Suspect]
     Route: 048
     Dates: start: 20100224
  4. ASPIRIN [Suspect]
     Route: 048
     Dates: start: 20100723
  5. FORLAX [Suspect]
     Route: 048
     Dates: start: 20100224
  6. EQUANIL [Suspect]
     Route: 048
     Dates: start: 20101112, end: 20110513
  7. ATORVASTATIN CALCIUM [Suspect]
     Dosage: REPORTED AS CRESTOR
     Route: 048
     Dates: start: 20110425
  8. ATORVASTATIN CALCIUM [Suspect]
     Route: 048
     Dates: start: 20100701, end: 20110425
  9. ZOLPIDEM [Suspect]
     Route: 048
     Dates: start: 20100224
  10. BISOPROLOL FUMARATE [Suspect]
     Route: 048
     Dates: start: 20101024
  11. PAROXETINE HCL [Suspect]
     Route: 048
     Dates: start: 20100706
  12. ACETAMINOPHEN [Suspect]
     Route: 048
     Dates: start: 20100224
  13. BISOPROLOL FUMARATE [Suspect]
     Route: 048
     Dates: start: 20100224
  14. BONIVA [Suspect]
     Route: 048
     Dates: start: 20100201, end: 20110520
  15. PAROXETINE HCL [Suspect]
     Dosage: DOSE DECREASED TO 0.5 IN JULY.
     Route: 048
  16. ESIDRIX [Suspect]
     Route: 048
     Dates: start: 20100201, end: 20110420

REACTIONS (4)
  - ECZEMA [None]
  - EOSINOPHILIA [None]
  - PRURIGO [None]
  - PRURITUS GENERALISED [None]
